FAERS Safety Report 9726987 (Version 1)
Quarter: 2013Q4

REPORT INFORMATION
  Report Type: Spontaneous
  Country: US (occurrence: US)
  Receive Date: 20131203
  Receipt Date: 20131203
  Transmission Date: 20140711
  Serious: No
  Sender: FDA-Public Use
  Company Number: US-NOVEN-13US006873

PATIENT
  Age: 64 Year
  Sex: Male

DRUGS (5)
  1. FENTANYL [Suspect]
     Indication: PAIN
     Dosage: 100 UG/HR, Q 3DAYS
     Route: 062
     Dates: start: 20130501, end: 20130510
  2. OXYCODONE [Concomitant]
     Dosage: UNK
  3. DIAZEPAM [Concomitant]
     Dosage: UNK
  4. WARFARIN SODIUM [Concomitant]
     Dosage: UNK
  5. GABAPENTIN [Concomitant]
     Dosage: UNK

REACTIONS (7)
  - Drug withdrawal syndrome [None]
  - Inadequate analgesia [None]
  - Nausea [None]
  - Diarrhoea [None]
  - Irritability [None]
  - Drug administration error [Not Recovered/Not Resolved]
  - Product quality issue [None]
